FAERS Safety Report 8219085-X (Version None)
Quarter: 2012Q1

REPORT INFORMATION
  Report Type: 
  Country: None (occurrence: None)
  Receive Date: 20120319
  Receipt Date: 20120314
  Transmission Date: 20120608
  Serious: Yes (Death)
  Sender: FDA-Public Use
  Company Number: IT-SANOFI-AVENTIS-2012SA017423

PATIENT
  Age: 68 Year
  Sex: Male
  Weight: 60 kg

DRUGS (11)
  1. TRANQUITAL [Concomitant]
     Dosage: FORM: DROPS
     Dates: start: 20120218
  2. ALBUMIN (HUMAN) [Concomitant]
     Dosage: 20 PERCENT
     Dates: start: 20120225, end: 20120229
  3. LANTUS [Concomitant]
     Dates: start: 20120216
  4. PANTOPRAZOLE [Concomitant]
  5. DOCETAXEL [Suspect]
     Dosage: FORM: SOLUTION
     Route: 042
     Dates: start: 20120228, end: 20120228
  6. MYCOSTATIN [Concomitant]
     Dates: start: 20120225, end: 20120229
  7. DOCETAXEL [Suspect]
     Indication: NON-SMALL CELL LUNG CANCER METASTATIC
     Dosage: FORM: SOLUTION
     Route: 042
     Dates: start: 20120228, end: 20120228
  8. HUMALOG [Concomitant]
     Dates: start: 20120216
  9. LEVOFLOXACIN [Concomitant]
     Dates: start: 20120222, end: 20120229
  10. ERLOTINIB HYDROCHLORIDE [Suspect]
     Indication: NON-SMALL CELL LUNG CANCER METASTATIC
     Route: 048
     Dates: start: 20120229, end: 20120306
  11. LEVOTUSS [Concomitant]
     Dates: start: 20120220

REACTIONS (1)
  - NEUTROPENIA [None]
